FAERS Safety Report 12157986 (Version 1)
Quarter: 2016Q1

REPORT INFORMATION
  Report Type: Spontaneous
  Country: US (occurrence: US)
  Receive Date: 20160308
  Receipt Date: 20160308
  Transmission Date: 20160526
  Serious: No
  Sender: FDA-Public Use
  Company Number: US-JNJFOC-20150200520

PATIENT
  Age: 83 Year
  Sex: Male

DRUGS (6)
  1. IMBRUVICA [Suspect]
     Active Substance: IBRUTINIB
     Indication: CHRONIC LYMPHOCYTIC LEUKAEMIA
     Route: 048
     Dates: start: 20140816
  2. DIAZEPAM. [Concomitant]
     Active Substance: DIAZEPAM
  3. DEXILANT [Concomitant]
     Active Substance: DEXLANSOPRAZOLE
  4. VALPROIC ACID. [Concomitant]
     Active Substance: VALPROIC ACID
  5. CENTRUM A TO Z [Concomitant]
  6. VESICARE [Concomitant]
     Active Substance: SOLIFENACIN SUCCINATE

REACTIONS (2)
  - Back injury [Unknown]
  - Infection [Unknown]

NARRATIVE: CASE EVENT DATE: 20150113
